FAERS Safety Report 14450285 (Version 3)
Quarter: 2018Q1

REPORT INFORMATION
  Report Type: Report from Study
  Country: US (occurrence: US)
  Receive Date: 20180129
  Receipt Date: 20180213
  Transmission Date: 20180509
  Serious: Yes (Life-Threatening, Hospitalization, Other)
  Sender: FDA-Public Use
  Company Number: US-TESARO, INC-US-2018TSO00439

PATIENT

DRUGS (7)
  1. CENTRUM SILVER                     /02363801/ [Concomitant]
     Active Substance: MINERALS\VITAMINS
     Dosage: UNK
     Route: 048
  2. NORVASC [Concomitant]
     Active Substance: AMLODIPINE BESYLATE
     Dosage: 10 MG, QD
     Route: 048
  3. SOTALOL HCL [Concomitant]
     Active Substance: SOTALOL
     Dosage: 80 MG, QD
     Route: 048
  4. ZEJULA [Suspect]
     Active Substance: NIRAPARIB
     Indication: OVARIAN CANCER RECURRENT
     Dosage: 300 MG, QD
     Route: 048
     Dates: start: 20171218
  5. ZEJULA [Suspect]
     Active Substance: NIRAPARIB
     Indication: BLADDER CANCER
     Dosage: 100 MG, QD
     Route: 048
     Dates: start: 20180108, end: 20180112
  6. CRESTOR [Concomitant]
     Active Substance: ROSUVASTATIN CALCIUM
     Dosage: 5 MG, UNK
     Route: 048
  7. ZOFRAN [Concomitant]
     Active Substance: ONDANSETRON HYDROCHLORIDE
     Indication: PRODUCT USE ISSUE

REACTIONS (17)
  - Mouth ulceration [Unknown]
  - Haemoglobin decreased [Unknown]
  - Haematocrit decreased [Unknown]
  - Fibrin D dimer increased [Unknown]
  - Thrombocytopenia [Recovered/Resolved]
  - Pemphigus [Not Recovered/Not Resolved]
  - Pharyngeal abscess [Unknown]
  - Lymphocyte count decreased [Unknown]
  - Bone marrow failure [Not Recovered/Not Resolved]
  - Asthenia [Unknown]
  - Red cell distribution width increased [Unknown]
  - Red blood cell count decreased [Unknown]
  - Malaise [Unknown]
  - Fatigue [Unknown]
  - White blood cell count decreased [Unknown]
  - Neutropenia [Unknown]
  - Pyrexia [Unknown]

NARRATIVE: CASE EVENT DATE: 201801
